FAERS Safety Report 7530805-X (Version None)
Quarter: 2011Q2

REPORT INFORMATION
  Report Type: 
  Country: None (occurrence: None)
  Receive Date: 20110607
  Receipt Date: 20110527
  Transmission Date: 20111010
  Serious: Yes (Other)
  Sender: FDA-Public Use
  Company Number: US-RB-028105-11

PATIENT
  Sex: Male

DRUGS (1)
  1. SUBOXONE [Suspect]
     Indication: PRODUCT USED FOR UNKNOWN INDICATION
     Dosage: UNKNOWN DOSING INFORMATION
     Route: 065

REACTIONS (7)
  - ARTHRALGIA [None]
  - INSOMNIA [None]
  - EMOTIONAL DISTRESS [None]
  - SELF-INJURIOUS IDEATION [None]
  - BACK PAIN [None]
  - DEPRESSION [None]
  - SUICIDAL IDEATION [None]
